FAERS Safety Report 21033094 (Version 1)
Quarter: 2022Q3

REPORT INFORMATION
  Report Type: Spontaneous
  Country: JP (occurrence: JP)
  Receive Date: 20220701
  Receipt Date: 20220701
  Transmission Date: 20221027
  Serious: Yes (Other)
  Sender: FDA-Public Use
  Company Number: JP-MYLANLABS-2022M1049324

PATIENT
  Age: 38 Year
  Sex: Male

DRUGS (2)
  1. TAMOXIFEN [Suspect]
     Active Substance: TAMOXIFEN
     Indication: Desmoid tumour
     Route: 065
  2. SULINDAC [Suspect]
     Active Substance: SULINDAC
     Indication: Desmoid tumour
     Route: 065

REACTIONS (1)
  - Drug ineffective [Unknown]
